FAERS Safety Report 7804697-5 (Version None)
Quarter: 2011Q4

REPORT INFORMATION
  Report Type: 
  Country: None (occurrence: None)
  Receive Date: 20111010
  Receipt Date: 20110930
  Transmission Date: 20120403
  Serious: Yes (Hospitalization)
  Sender: FDA-Public Use
  Company Number: JP-ASTRAZENECA-2011SE33825

PATIENT
  Age: 75 Year
  Sex: Female

DRUGS (11)
  1. CALBLOCK [Concomitant]
     Indication: HYPERTENSION
     Route: 048
     Dates: start: 20060814
  2. LASIX [Concomitant]
     Indication: HYPERTENSION
     Route: 048
     Dates: start: 20100616
  3. CRESTOR [Concomitant]
     Indication: DYSLIPIDAEMIA
     Route: 048
     Dates: start: 20060911
  4. CANDESARTAN CILEXETIL AND HYDROCHLOROTHIAZIDE [Suspect]
     Indication: HYPERTENSION
     Dosage: 1 DF EVERY DAY
     Route: 048
     Dates: start: 20100617
  5. ISOSORBIDE MONONITRATE [Concomitant]
     Indication: ANGINA PECTORIS
     Route: 048
     Dates: start: 20060814
  6. LANIRAPID [Concomitant]
     Indication: ATRIAL FIBRILLATION
     Route: 048
     Dates: start: 20100107
  7. ZETIA [Concomitant]
     Indication: DYSLIPIDAEMIA
     Route: 048
     Dates: start: 20091008
  8. AMARYL [Concomitant]
     Indication: DIABETES MELLITUS
     Route: 048
     Dates: start: 20060911
  9. ACTOS [Concomitant]
     Indication: DIABETES MELLITUS
     Route: 048
     Dates: start: 20071219
  10. CARVEDILOL [Concomitant]
     Indication: HYPERTENSION
     Route: 048
     Dates: start: 20041101
  11. ASPENON [Concomitant]
     Indication: ATRIAL FIBRILLATION
     Route: 048
     Dates: start: 20041101

REACTIONS (6)
  - BLOOD CREATININE INCREASED [None]
  - GASTRIC CANCER [None]
  - HEPATITIS C [None]
  - IRON DEFICIENCY ANAEMIA [None]
  - GASTRIC ULCER [None]
  - BLOOD POTASSIUM INCREASED [None]
